FAERS Safety Report 7288792-8 (Version None)
Quarter: 2011Q1

REPORT INFORMATION
  Report Type: 
  Country: None (occurrence: None)
  Receive Date: 20110211
  Receipt Date: 20110208
  Transmission Date: 20110831
  Serious: Yes (Other)
  Sender: FDA-Public Use
  Company Number: US-ABBOTT-11P-163-0703752-00

PATIENT
  Sex: Female
  Weight: 63.106 kg

DRUGS (10)
  1. FEMORA [Concomitant]
     Indication: PROPHYLAXIS
  2. ZOLPIDEM [Concomitant]
     Indication: INSOMNIA
  3. SYNTHROID [Concomitant]
     Indication: THYROID DISORDER
  4. FLOVENT [Concomitant]
     Indication: DYSPNOEA
  5. ACETAMINOPHEN [Concomitant]
     Indication: PAIN
  6. DEPAKOTE [Suspect]
     Indication: AFFECTIVE DISORDER
     Dosage: 1 TAB MORNING: 2 TABS EVENING
     Dates: start: 20080101
  7. FEMORA [Concomitant]
     Indication: NEOPLASM MALIGNANT
  8. ZYPREXA [Concomitant]
     Indication: EMOTIONAL DISORDER
  9. VITAMIN D [Concomitant]
     Indication: PRODUCT USED FOR UNKNOWN INDICATION
  10. COGENTIN [Concomitant]
     Indication: PRODUCT USED FOR UNKNOWN INDICATION

REACTIONS (3)
  - BREAST MASS [None]
  - BREAST CANCER [None]
  - NIGHTMARE [None]
